FAERS Safety Report 11783769 (Version 1)
Quarter: 2015Q4

REPORT INFORMATION
  Report Type: Spontaneous
  Country: US (occurrence: US)
  Receive Date: 20151127
  Receipt Date: 20151127
  Transmission Date: 20160305
  Serious: No
  Sender: FDA-Public Use
  Company Number: US-ASTRAZENECA-2015SF12584

PATIENT
  Sex: Male
  Weight: 152 kg

DRUGS (2)
  1. GLYBURIDE. [Concomitant]
     Active Substance: GLYBURIDE
     Route: 048
  2. FARXIGA [Suspect]
     Active Substance: DAPAGLIFLOZIN PROPANEDIOL
     Route: 048

REACTIONS (2)
  - Dizziness [Unknown]
  - Glycosylated haemoglobin increased [Unknown]
